FAERS Safety Report 8131254-6 (Version None)
Quarter: 2012Q1

REPORT INFORMATION
  Report Type: 
  Country: None (occurrence: None)
  Receive Date: 20120213
  Receipt Date: 20120203
  Transmission Date: 20120608
  Serious: Yes (Other)
  Sender: FDA-Public Use
  Company Number: US-US-EMD SERONO, INC.-7111314

PATIENT
  Sex: Male

DRUGS (2)
  1. REBIF [Suspect]
     Indication: MULTIPLE SCLEROSIS
     Route: 058
     Dates: start: 20111217
  2. INSULIN [Concomitant]

REACTIONS (7)
  - FATIGUE [None]
  - VIOLENCE-RELATED SYMPTOM [None]
  - BALANCE DISORDER [None]
  - STRESS [None]
  - CHILLS [None]
  - AGITATION [None]
  - MEMORY IMPAIRMENT [None]
